FAERS Safety Report 19976749 (Version 1)
Quarter: 2021Q4

REPORT INFORMATION
  Report Type: Spontaneous
  Country: US (occurrence: US)
  Receive Date: 20211020
  Receipt Date: 20211020
  Transmission Date: 20220303
  Serious: Yes (Other)
  Sender: FDA-Public Use
  Company Number: US-ELI_LILLY_AND_COMPANY-US202110004856

PATIENT

DRUGS (1)
  1. ADCIRCA [Suspect]
     Active Substance: TADALAFIL
     Indication: Product used for unknown indication
     Dosage: 20 MG, UNKNOWN
     Route: 065

REACTIONS (4)
  - Accident [Recovered/Resolved]
  - Coma [Recovered/Resolved]
  - Open fracture [Unknown]
  - Blindness [Not Recovered/Not Resolved]

NARRATIVE: CASE EVENT DATE: 20210801
